FAERS Safety Report 7413723-7 (Version None)
Quarter: 2011Q2

REPORT INFORMATION
  Report Type: 
  Country: None (occurrence: None)
  Receive Date: 20110413
  Receipt Date: 20110404
  Transmission Date: 20111010
  Serious: Yes (Other)
  Sender: FDA-Public Use
  Company Number: FR-PFIZER INC-2011074697

PATIENT
  Age: 58 Year
  Sex: Male
  Weight: 70 kg

DRUGS (12)
  1. ZYVOX [Suspect]
     Dosage: UNK
     Route: 042
     Dates: start: 20101226, end: 20101231
  2. CANCIDAS [Concomitant]
     Dosage: UNK
     Dates: start: 20101226
  3. TRIFLUCAN [Suspect]
     Dosage: 1 PER COURSE
     Route: 042
     Dates: start: 20101215, end: 20110110
  4. MERONEM [Suspect]
     Dosage: UNK
     Route: 042
     Dates: start: 20110106, end: 20110110
  5. ZYVOX [Suspect]
     Dosage: 1 PER COURSE
     Route: 042
     Dates: start: 20101210, end: 20101213
  6. TYGACIL [Concomitant]
     Indication: ANTIBIOTIC THERAPY
     Dosage: UNK
     Dates: start: 20101220
  7. ZYVOX [Suspect]
     Dosage: UNK
     Route: 042
     Dates: start: 20110106, end: 20110110
  8. MERONEM [Suspect]
     Dosage: 1 PER COURSE
     Route: 042
     Dates: start: 20101210
  9. MERONEM [Suspect]
     Dosage: UNK
     Route: 042
     Dates: start: 20101226, end: 20101231
  10. CANCIDAS [Concomitant]
     Dosage: UNK
     Dates: start: 20101210, end: 20101201
  11. TIENAM [Concomitant]
     Dosage: UNK
     Dates: start: 20101201, end: 20101220
  12. FORTUM [Concomitant]
     Dosage: UNK
     Dates: start: 20101226

REACTIONS (1)
  - CHOLESTASIS [None]
